FAERS Safety Report 7401604-4 (Version None)
Quarter: 2011Q2

REPORT INFORMATION
  Report Type: 
  Country: None (occurrence: None)
  Receive Date: 20110408
  Receipt Date: 20110330
  Transmission Date: 20111010
  Serious: No
  Sender: FDA-Public Use
  Company Number: US-BIOGENIDEC-2011BI007684

PATIENT
  Age: 50 Year
  Sex: Male

DRUGS (1)
  1. TYSABRI [Suspect]
     Indication: MULTIPLE SCLEROSIS
     Route: 042
     Dates: start: 20100630

REACTIONS (6)
  - DIZZINESS [None]
  - CYSTITIS [None]
  - FATIGUE [None]
  - PAIN IN EXTREMITY [None]
  - KIDNEY INFECTION [None]
  - BALANCE DISORDER [None]
